FAERS Safety Report 9459192 (Version 1)
Quarter: 2013Q3

REPORT INFORMATION
  Report Type: Spontaneous
  Country: US (occurrence: US)
  Receive Date: 20130814
  Receipt Date: 20130814
  Transmission Date: 20140515
  Serious: No
  Sender: FDA-Public Use
  Company Number: US-009507513-1307USA015596

PATIENT
  Age: 76 Year
  Sex: Female

DRUGS (7)
  1. COSOPT [Suspect]
     Indication: GLAUCOMA
     Dosage: 2 GTT, BID
     Route: 047
  2. RESTASIS [Suspect]
     Indication: DRY EYE
     Dosage: 2 GTT, BID
     Route: 047
  3. GEMFIBROZIL [Concomitant]
     Indication: BLOOD CHOLESTEROL
  4. NEURONTIN [Concomitant]
     Indication: NEUROPATHY PERIPHERAL
  5. METFORMIN [Concomitant]
     Indication: DIABETES MELLITUS
  6. PANTOPRAZOLE [Concomitant]
     Indication: ULCER HAEMORRHAGE
  7. VITAMINS (UNSPECIFIED) [Concomitant]

REACTIONS (4)
  - Erythema [Unknown]
  - Skin wrinkling [Unknown]
  - Dermatitis allergic [Unknown]
  - Eye irritation [Unknown]
